FAERS Safety Report 21860438 (Version 1)
Quarter: 2023Q1

REPORT INFORMATION
  Report Type: Spontaneous
  Country: CA (occurrence: CA)
  Receive Date: 20230113
  Receipt Date: 20230113
  Transmission Date: 20230418
  Serious: Yes (Other)
  Sender: FDA-Public Use
  Company Number: CA-ORGANON-O2301CAN000437

PATIENT
  Age: 35 Year
  Weight: 56 kg

DRUGS (9)
  1. SINGULAIR [Suspect]
     Active Substance: MONTELUKAST SODIUM
     Indication: Hypersensitivity
     Dosage: 10 MILLIGRAM, 1 EVERY 1 DAY
     Route: 048
  2. SYMBICORT [Suspect]
     Active Substance: BUDESONIDE\FORMOTEROL FUMARATE DIHYDRATE
     Indication: Hypersensitivity
     Dosage: 1 DOSAGE FORM, 2 EVERY 1 DAYS
  3. PROSCAR [Concomitant]
     Active Substance: FINASTERIDE
     Dosage: UNK; FORMULATION REPORTED AS TABLET
     Route: 065
  4. AMLODIPINE [Concomitant]
     Active Substance: AMLODIPINE BESYLATE
     Dosage: UNK
     Route: 065
  5. CANDESARTAN [Concomitant]
     Active Substance: CANDESARTAN
     Dosage: UNK
     Route: 065
  6. MINOXIDIL [Concomitant]
     Active Substance: MINOXIDIL
     Dosage: UNK; DOSAGE FORM NOT SPECIFIED
     Route: 065
  7. TRUVADA [Concomitant]
     Active Substance: EMTRICITABINE\TENOFOVIR DISOPROXIL FUMARATE
     Dosage: UNK
     Route: 065
  8. VITAMIN C [Concomitant]
     Active Substance: ASCORBIC ACID
     Dosage: UNK; DOSAGE FORM: NOT SPECIFIED
     Route: 065
  9. VITAMIN D NOS [Concomitant]
     Active Substance: VITAMIN D NOS
     Dosage: UNK; DOSAGE FORM: NOT SPECIFIED
     Route: 065

REACTIONS (16)
  - Agitation [Recovered/Resolved]
  - Anxiety [Recovered/Resolved]
  - Cold sweat [Recovered/Resolved]
  - Confusional state [Recovered/Resolved]
  - Deafness unilateral [Recovered/Resolved]
  - Dizziness [Recovered/Resolved]
  - Dysarthria [Recovered/Resolved]
  - Dysphemia [Recovered/Resolved]
  - Facial paralysis [Recovered/Resolved]
  - Fear of death [Recovered/Resolved]
  - Feeling cold [Recovered/Resolved]
  - Feeling jittery [Recovered/Resolved]
  - Myalgia [Recovered/Resolved]
  - Palpitations [Recovered/Resolved]
  - Restlessness [Recovered/Resolved]
  - Tremor [Recovered/Resolved]
